FAERS Safety Report 5354874-0 (Version None)
Quarter: 2007Q2

REPORT INFORMATION
  Report Type: 
  Country: None (occurrence: None)
  Receive Date: 20070604
  Receipt Date: 20070521
  Transmission Date: 20071010
  Serious: Yes (Hospitalization)
  Sender: FDA-Public Use
  Company Number: HAPL-004-07-GB

PATIENT
  Age: 69 Year
  Sex: Male

DRUGS (4)
  1. IMMUNE GLOBULIN (HUMAN) [Suspect]
     Indication: CHRONIC INFLAMMATORY DEMYELINATING POLYRADICULONEUROPATHY
     Dosage: 40 G
     Route: 042
     Dates: start: 20060218, end: 20061221
  2. LOSARTAN POTASSIUM [Concomitant]
  3. OMEPRAZOLE [Concomitant]
  4. PERINDOPRIL ERBUMINE [Concomitant]

REACTIONS (5)
  - HYPERTENSION [None]
  - MALAISE [None]
  - PHOTOPHOBIA [None]
  - PUPILS UNEQUAL [None]
  - VOMITING [None]
